FAERS Safety Report 7088440-6 (Version None)
Quarter: 2010Q4

REPORT INFORMATION
  Report Type: 
  Country: None (occurrence: None)
  Receive Date: 20101029
  Receipt Date: 20101013
  Transmission Date: 20110411
  Serious: Yes (Hospitalization, Other)
  Sender: FDA-Public Use
  Company Number: ACO_02730_2010

PATIENT
  Sex: Female

DRUGS (2)
  1. AMPYRA [Suspect]
     Indication: GAIT DISTURBANCE
     Dosage: (DF)
     Dates: start: 20100601, end: 20100901
  2. AVONEX [Suspect]
     Indication: MULTIPLE SCLEROSIS
     Dosage: (DF)
     Dates: start: 20010716, end: 20100905

REACTIONS (3)
  - MULTIPLE SCLEROSIS RELAPSE [None]
  - PARALYSIS [None]
  - URINARY TRACT INFECTION [None]
